FAERS Safety Report 6419119-9 (Version None)
Quarter: 2009Q4

REPORT INFORMATION
  Report Type: 
  Country: None (occurrence: None)
  Receive Date: 20091028
  Receipt Date: 20091028
  Transmission Date: 20100525
  Serious: No
  Sender: FDA-Public Use
  Company Number: None

PATIENT
  Age: 14 Year
  Sex: Male
  Weight: 58.1511 kg

DRUGS (1)
  1. TAMIFLU [Suspect]
     Indication: INFLUENZA
     Dosage: 75MG BID PO
     Route: 048
     Dates: start: 20091025, end: 20091026

REACTIONS (3)
  - HEADACHE [None]
  - STARING [None]
  - THINKING ABNORMAL [None]
